FAERS Safety Report 24578757 (Version 3)
Quarter: 2025Q1

REPORT INFORMATION
  Report Type: Spontaneous
  Country: PL (occurrence: PL)
  Receive Date: 20241105
  Receipt Date: 20250207
  Transmission Date: 20250409
  Serious: No
  Sender: AUROBINDO
  Company Number: PL-Orion Corporation ORION PHARMA-SERT2024-0009

PATIENT
  Sex: Female

DRUGS (2)
  1. SERTRALINE [Suspect]
     Active Substance: SERTRALINE HYDROCHLORIDE
     Indication: Depression
     Route: 065
  2. OXYCODONE [Suspect]
     Active Substance: OXYCODONE
     Indication: Colorectal cancer
     Route: 065

REACTIONS (1)
  - Gingival pain [Recovering/Resolving]
